FAERS Safety Report 8320275-6 (Version None)
Quarter: 2012Q2

REPORT INFORMATION
  Report Type: 
  Country: None (occurrence: None)
  Receive Date: 20120426
  Receipt Date: 20120426
  Transmission Date: 20120825
  Serious: No
  Sender: FDA-Public Use
  Company Number: None

PATIENT
  Sex: Female
  Weight: 102.0593 kg

DRUGS (1)
  1. XELODA [Suspect]
     Indication: COLON CANCER
     Dosage: 1650MG BID/FOR 14D ORAL
     Route: 048
     Dates: start: 20120229, end: 20120423

REACTIONS (4)
  - OEDEMA MOUTH [None]
  - DIARRHOEA [None]
  - DIZZINESS [None]
  - SKIN DISCOLOURATION [None]
